FAERS Safety Report 9649417 (Version 2)
Quarter: 2014Q1

REPORT INFORMATION
  Report Type: Spontaneous
  Country: JP (occurrence: JP)
  Receive Date: 20131028
  Receipt Date: 20140127
  Transmission Date: 20141002
  Serious: Yes (Other)
  Sender: FDA-Public Use
  Company Number: PHHY2013JP119968

PATIENT
  Age: 91 Year
  Sex: Male

DRUGS (6)
  1. AMPICILLIN SODIUM+SULBACTAM SODIUM SANDOZ [Suspect]
     Indication: PNEUMONIA
     Dosage: 1.5 G, TID
     Route: 042
     Dates: start: 20131015
  2. FUROSEMIDE [Concomitant]
     Route: 042
  3. DIGILANOGEN C [Concomitant]
  4. PHYSIO 35 [Concomitant]
     Route: 042
  5. FRANDOL S [Concomitant]
     Route: 062
  6. HOKUNALIN [Concomitant]
     Route: 062

REACTIONS (2)
  - Blood creatine phosphokinase increased [Unknown]
  - Blood urea increased [Unknown]
